FAERS Safety Report 18051818 (Version 1)
Quarter: 2020Q3

REPORT INFORMATION
  Report Type: Spontaneous
  Country: FR (occurrence: FR)
  Receive Date: 20200721
  Receipt Date: 20200721
  Transmission Date: 20201103
  Serious: Yes (Death)
  Sender: FDA-Public Use
  Company Number: FR-BAUSCH-BL-2020-020076

PATIENT
  Age: 35 Year
  Sex: Female
  Weight: 169 kg

DRUGS (2)
  1. HEROIN [Suspect]
     Active Substance: DIAMORPHINE
     Indication: SUBSTANCE USE
     Dosage: NP
     Route: 065
     Dates: end: 20190830
  2. VENLAFAXINE [Suspect]
     Active Substance: VENLAFAXINE HYDROCHLORIDE
     Indication: PRODUCT USED FOR UNKNOWN INDICATION
     Route: 065
     Dates: end: 20190830

REACTIONS (2)
  - Drug abuse [Fatal]
  - Asphyxia [Fatal]

NARRATIVE: CASE EVENT DATE: 20190830
